FAERS Safety Report 15825828 (Version 2)
Quarter: 2019Q1

REPORT INFORMATION
  Report Type: Spontaneous
  Country: US (occurrence: US)
  Receive Date: 20190115
  Receipt Date: 20190205
  Transmission Date: 20190417
  Serious: Yes (Hospitalization, Other)
  Sender: FDA-Public Use
  Company Number: US-GLAXOSMITHKLINE-US2019GSK000777

PATIENT
  Sex: Male
  Weight: 88 kg

DRUGS (15)
  1. VALSARTAN. [Suspect]
     Active Substance: VALSARTAN
     Indication: CARDIAC FAILURE
     Dosage: 80 MG, BID
     Route: 048
     Dates: start: 20180131, end: 20180412
  2. LASIX [Concomitant]
     Active Substance: FUROSEMIDE
  3. ALLOPURINOL. [Concomitant]
     Active Substance: ALLOPURINOL
  4. GENTAMYCIN [Concomitant]
     Active Substance: GENTAMICIN
  5. FENOFIBRATE. [Concomitant]
     Active Substance: FENOFIBRATE
  6. LIPITOR [Concomitant]
     Active Substance: ATORVASTATIN CALCIUM
  7. ASPIRIN + CAFFEINE + SALICYLAMIDE [Concomitant]
     Active Substance: ASPIRIN\CAFFEINE\SALICYLAMIDE
  8. PROPECIA [Concomitant]
     Active Substance: FINASTERIDE
  9. PRESERVISION [Concomitant]
     Active Substance: MINERALS\VITAMINS
  10. EPOGEN [Concomitant]
     Active Substance: ERYTHROPOIETIN
  11. COUMADIN [Concomitant]
     Active Substance: WARFARIN SODIUM
  12. CEPHALEXIN. [Concomitant]
     Active Substance: CEPHALEXIN
  13. POLY IRON [Concomitant]
     Active Substance: DIETARY SUPPLEMENT
  14. CARVEDILOL. [Suspect]
     Active Substance: CARVEDILOL
     Indication: PRODUCT USED FOR UNKNOWN INDICATION
     Dosage: 6 MG, BID
     Dates: start: 2018
  15. VELPHORO [Concomitant]
     Active Substance: FERRIC OXYHYDROXIDE

REACTIONS (2)
  - Peritonitis [Unknown]
  - Hypotension [Recovered/Resolved]
